FAERS Safety Report 6684631-4 (Version None)
Quarter: 2010Q2

REPORT INFORMATION
  Report Type: 
  Country: None (occurrence: None)
  Receive Date: 20100416
  Receipt Date: 20100414
  Transmission Date: 20101027
  Serious: Yes (Hospitalization, Other)
  Sender: FDA-Public Use
  Company Number: US-ROXANE LABORATORIES, INC.-2010-RO-00421RO

PATIENT
  Age: 60 Year
  Sex: Male

DRUGS (8)
  1. HYDROMORPHONE HCL [Suspect]
     Indication: BACK PAIN
     Route: 048
  2. HYDROMORPHONE HCL [Suspect]
     Indication: PROCEDURAL PAIN
     Route: 008
  3. FENTANYL [Suspect]
     Indication: BACK PAIN
     Route: 062
  4. FENTANYL [Suspect]
     Indication: PROCEDURAL PAIN
     Route: 008
  5. BUPIVACAINE HCL [Suspect]
     Indication: PROCEDURAL PAIN
     Route: 008
  6. BUPIVACAINE HCL [Suspect]
     Route: 008
  7. METOPROLOL TARTRATE [Suspect]
     Indication: ATRIAL FIBRILLATION
  8. MORPHINE [Concomitant]
     Indication: DRUG WITHDRAWAL SYNDROME
     Dosage: 5 MG
     Route: 042

REACTIONS (10)
  - ANXIETY [None]
  - ATRIAL FIBRILLATION [None]
  - CHILLS [None]
  - COLD SWEAT [None]
  - DRUG INEFFECTIVE [None]
  - DRUG WITHDRAWAL SYNDROME [None]
  - HEADACHE [None]
  - MYALGIA [None]
  - PAIN [None]
  - TREMOR [None]
